FAERS Safety Report 8154342-7 (Version None)
Quarter: 2012Q1

REPORT INFORMATION
  Report Type: 
  Country: None (occurrence: None)
  Receive Date: 20120221
  Receipt Date: 20120213
  Transmission Date: 20120608
  Serious: Yes (Other)
  Sender: FDA-Public Use
  Company Number: CA-B.I. PHARMACEUTICALS,INC./RIDGEFIELD-2012-CN-00257CN

PATIENT
  Age: 49 Year
  Sex: Female
  Weight: 89.81 kg

DRUGS (3)
  1. MIRAPEX [Suspect]
     Dosage: 0.25 MG
     Route: 048
  2. ASTHMA MEDICATIONS [Concomitant]
  3. REQUIP [Suspect]
     Dosage: 0.25 MG
     Route: 048

REACTIONS (5)
  - COMPULSIONS [None]
  - ASTHMA [None]
  - INSOMNIA [None]
  - PATHOLOGICAL GAMBLING [None]
  - CONDITION AGGRAVATED [None]
